FAERS Safety Report 6496292-8 (Version None)
Quarter: 2009Q4

REPORT INFORMATION
  Report Type: 
  Country: None (occurrence: None)
  Receive Date: 20091214
  Receipt Date: 20091203
  Transmission Date: 20100525
  Serious: Yes (Other)
  Sender: FDA-Public Use
  Company Number: US-JNJCH-2009031508

PATIENT
  Age: 75 Year
  Sex: Female
  Weight: 64.9 kg

DRUGS (7)
  1. NASALCROM [Suspect]
     Indication: NASAL CONGESTION
     Dosage: TEXT:1 SQUIRT EACH NOSTRIL EVERY 5 HRS 2X/DAY
     Route: 045
     Dates: start: 20091130, end: 20091130
  2. LEVAQUIN [Concomitant]
     Indication: INFECTION
     Route: 065
  3. METFORMIN [Concomitant]
     Indication: DIABETES MELLITUS
     Dosage: TEXT:2 TABLETS 2 X PER DAY
     Route: 065
  4. PLAVIX [Concomitant]
     Indication: ANTICOAGULANT THERAPY
     Route: 065
  5. COZAAR [Concomitant]
     Indication: HYPERTENSION
     Route: 065
  6. ACTOS [Concomitant]
     Indication: DIABETES MELLITUS
     Route: 065
  7. DIGOXIN [Concomitant]
     Indication: HEART RATE IRREGULAR
     Dosage: TEXT:0.25MG ONCE A DAY
     Route: 065

REACTIONS (5)
  - ABASIA [None]
  - HYPOAESTHESIA [None]
  - PAIN [None]
  - PAIN IN EXTREMITY [None]
  - PARAESTHESIA [None]
